FAERS Safety Report 21284727 (Version 1)
Quarter: 2022Q3

REPORT INFORMATION
  Report Type: Spontaneous
  Country: US (occurrence: US)
  Receive Date: 20220902
  Receipt Date: 20220902
  Transmission Date: 20221026
  Serious: No
  Sender: FDA-Public Use
  Company Number: ENDG22-03974

PATIENT
  Sex: Male

DRUGS (4)
  1. PREDNISONE [Suspect]
     Active Substance: PREDNISONE
     Indication: Hypersensitivity
     Dosage: UNK UNKNOWN, UNKNOWN
     Route: 065
     Dates: start: 2021, end: 2021
  2. MONTELUKAST [Suspect]
     Active Substance: MONTELUKAST SODIUM
     Indication: Hypersensitivity
     Dosage: UNK UNKNOWN, UNKNOWN
     Route: 065
     Dates: start: 2021
  3. ANTIHISTAMINES NOS [Suspect]
     Active Substance: ANTIHISTAMINES NOS
     Indication: Hypersensitivity
     Dosage: UNK UNKNOWN, UNKNOWN
     Route: 065
     Dates: start: 2021
  4. DOXEPIN [Suspect]
     Active Substance: DOXEPIN
     Indication: Hypersensitivity
     Dosage: UNK UNKNOWN, UNKNOWN
     Route: 065
     Dates: start: 2021

REACTIONS (6)
  - Lethargy [Unknown]
  - Osteopenia [Recovering/Resolving]
  - Depression [Recovered/Resolved]
  - Anxiety [Recovered/Resolved]
  - Abdominal distension [Unknown]
  - Drug ineffective [Unknown]

NARRATIVE: CASE EVENT DATE: 20210101
